FAERS Safety Report 6282862-9 (Version None)
Quarter: 2009Q3

REPORT INFORMATION
  Report Type: 
  Country: None (occurrence: None)
  Receive Date: 20090724
  Receipt Date: 20090717
  Transmission Date: 20100115
  Serious: Yes (Life-Threatening, Hospitalization)
  Sender: FDA-Public Use
  Company Number: US-GENENTECH-287103

PATIENT
  Age: 78 Year
  Sex: Male
  Weight: 68 kg

DRUGS (13)
  1. BEVACIZUMAB [Suspect]
     Indication: COLORECTAL CANCER METASTATIC
     Dosage: 268 MG, Q2W
     Route: 042
     Dates: start: 20071112, end: 20080317
  2. BEVACIZUMAB [Suspect]
     Dosage: 85 MG/M2, Q2W
     Route: 042
     Dates: start: 20071112, end: 20080317
  3. BEVACIZUMAB [Suspect]
     Dosage: 400 MG/M2, Q2W
     Route: 042
     Dates: start: 20071112, end: 20080317
  4. BEVACIZUMAB [Suspect]
     Dosage: 2400 MG/M2, UNK
     Route: 042
     Dates: start: 20071112, end: 20080317
  5. OXALIPLATIN [Suspect]
     Indication: COLORECTAL CANCER METASTATIC
     Dosage: 137 MG, Q2W
     Route: 042
     Dates: start: 20071112, end: 20080317
  6. LEUCOVORIN CALCIUM [Suspect]
     Indication: COLORECTAL CANCER METASTATIC
     Dosage: 648 MG, Q2W
     Route: 042
     Dates: start: 20071112, end: 20080317
  7. FLUOROURACIL [Suspect]
     Indication: COLORECTAL CANCER METASTATIC
     Dosage: 400 MG/M2, Q2W
     Route: 040
     Dates: start: 20071112, end: 20080319
  8. FLUOROURACIL [Suspect]
     Dosage: 2400 MG/M2, UNK
     Route: 042
     Dates: start: 20071112, end: 20080319
  9. ZOFRAN [Concomitant]
     Indication: DRUG USE FOR UNKNOWN INDICATION
     Dosage: UNK
     Dates: start: 20080322, end: 20080323
  10. PRILOSEC [Concomitant]
     Indication: DRUG USE FOR UNKNOWN INDICATION
     Dosage: UNK
     Dates: start: 20080322
  11. ALTERNAGEL [Concomitant]
     Indication: DRUG USE FOR UNKNOWN INDICATION
     Dosage: UNK
     Dates: start: 20080317
  12. LASIX [Concomitant]
     Indication: DRUG USE FOR UNKNOWN INDICATION
     Dosage: UNK
     Dates: start: 20080317
  13. PERI-COLACE [Concomitant]
     Indication: DRUG USE FOR UNKNOWN INDICATION
     Dosage: UNK
     Dates: start: 20090317

REACTIONS (5)
  - ANAEMIA [None]
  - DEEP VEIN THROMBOSIS [None]
  - GASTROINTESTINAL HAEMORRHAGE [None]
  - OESOPHAGITIS [None]
  - SHOCK HAEMORRHAGIC [None]
